FAERS Safety Report 5784250-8 (Version None)
Quarter: 2008Q2

REPORT INFORMATION
  Report Type: 
  Country: None (occurrence: None)
  Receive Date: 20080619
  Receipt Date: 20080609
  Transmission Date: 20081010
  Serious: Yes (Hospitalization)
  Sender: FDA-Public Use
  Company Number: 2008013388

PATIENT
  Age: 37 Year
  Sex: Male

DRUGS (2)
  1. CETIRIZINE HCL [Suspect]
     Indication: RHINORRHOEA
     Dosage: 10 MG, ORAL
     Route: 048
     Dates: start: 20080508, end: 20080510
  2. CARBOCISTEINE (CARBOCISTEINE) [Suspect]
     Indication: SPUTUM RETENTION
     Dosage: 1000 MG, ORAL
     Route: 048
     Dates: start: 20080501, end: 20080510

REACTIONS (2)
  - DEPRESSION [None]
  - SUICIDAL IDEATION [None]
